FAERS Safety Report 19998771 (Version 2)
Quarter: 2021Q4

REPORT INFORMATION
  Report Type: Spontaneous
  Country: US (occurrence: US)
  Receive Date: 20211027
  Receipt Date: 20211026
  Transmission Date: 20220303
  Serious: No
  Sender: FDA-Public Use
  Company Number: US-ROCHE-2819266

PATIENT
  Sex: Male

DRUGS (1)
  1. COTELLIC [Suspect]
     Active Substance: COBIMETINIB
     Indication: Metabolic disorder
     Dosage: 3 TABLETS BY MOUTH ONCE DAILY FOR WEEKS ON FOLLOWED BY 1 WEEK OFF.
     Route: 048

REACTIONS (3)
  - Off label use [Unknown]
  - Nausea [Unknown]
  - Rash [Not Recovered/Not Resolved]
